FAERS Safety Report 9350058 (Version 2)
Quarter: 2013Q3

REPORT INFORMATION
  Report Type: Spontaneous
  Country: SI (occurrence: SI)
  Receive Date: 20130615
  Receipt Date: 20130808
  Transmission Date: 20140515
  Serious: Yes (Hospitalization)
  Sender: FDA-Public Use
  Company Number: SI-009507513-1306SVN006045

PATIENT
  Age: 37 Year
  Sex: Male
  Weight: 80 kg

DRUGS (11)
  1. ZYPREXA [Concomitant]
     Dosage: 20 MG, QD
     Route: 048
     Dates: start: 20121206, end: 20121206
  2. HALDOL [Concomitant]
     Indication: BIPOLAR DISORDER
     Dosage: 5-0-5 (2.5-0-2.5MG) + 5 DROPS (2.5MG), AS NEEDED
     Route: 048
     Dates: start: 20121207, end: 20121209
  3. HALDOL [Concomitant]
     Dosage: 5-0-10 DROPS (2.5-0-5MG) + 5 DROPS (2.5MG) AS NEEDED
     Route: 048
     Dates: start: 20121209, end: 20121217
  4. HALDOL [Concomitant]
     Dosage: 4-0-8 DROPS (2-0-4 MG)+ 5 DROPS (2.5MG) AS NEEDED
     Route: 048
     Dates: start: 20121217, end: 20121219
  5. HALDOL [Concomitant]
     Dosage: 3-0-6 DROPS (1.5-0-3 MG)
     Route: 048
     Dates: start: 20121219, end: 20121224
  6. HALDOL [Concomitant]
     Dosage: 2-0-4 DROPS (1-0-2 MG)+ 4 DROPS (2MG) AS NEEDED
     Route: 048
     Dates: start: 20121224, end: 20130104
  7. HALDOL [Concomitant]
     Dosage: 4 GTT (2 MG), QPM
     Route: 048
     Dates: start: 20130104, end: 20130111
  8. HALDOL [Concomitant]
     Indication: BIPOLAR DISORDER
     Dosage: 2 MG, QD
     Route: 048
     Dates: start: 20130111
  9. SYCREST [Suspect]
     Indication: BIPOLAR DISORDER
     Dosage: 10 MG, BID
     Route: 060
     Dates: start: 20121129
  10. APAURIN [Concomitant]
     Indication: BIPOLAR DISORDER
     Dosage: DAILY DOSE OF 19 MG REGULARLY (2+2+5) AND 10 MG IN ADDITION AS NEEDED
     Route: 048
  11. ZYPREXA [Concomitant]
     Indication: BIPOLAR DISORDER
     Dosage: 20 MG, QD
     Route: 048
     Dates: start: 20121116, end: 20121129

REACTIONS (2)
  - Mania [Recovered/Resolved]
  - Drug ineffective [Recovered/Resolved]
